FAERS Safety Report 8401703-4 (Version None)
Quarter: 2012Q2

REPORT INFORMATION
  Report Type: 
  Country: None (occurrence: None)
  Receive Date: 20120529
  Receipt Date: 20120510
  Transmission Date: 20120825
  Serious: Yes (Life-Threatening)
  Sender: FDA-Public Use
  Company Number: IN-1192116

PATIENT
  Age: 60 Year
  Sex: Male

DRUGS (6)
  1. COMBIFLAM [Concomitant]
  2. VIGAMOX [Suspect]
     Indication: POSTOPERATIVE CARE
     Dosage: (OPHTHALMIC)
     Route: 047
     Dates: start: 20120501, end: 20120501
  3. NEVANAC [Suspect]
     Indication: POSTOPERATIVE CARE
     Dosage: (OPHTHALMIC)
     Route: 047
     Dates: start: 20120501, end: 20120501
  4. IOPAR [Concomitant]
  5. TIMOLOL MALEATE [Suspect]
     Indication: POSTOPERATIVE CARE
     Dosage: (OPHTHALMIC)
     Route: 047
     Dates: start: 20120501, end: 20120501
  6. ZO [Concomitant]

REACTIONS (3)
  - ANAPHYLACTIC SHOCK [None]
  - APPARENT LIFE THREATENING EVENT [None]
  - HYPERSENSITIVITY [None]
